FAERS Safety Report 8758830 (Version 3)
Quarter: 2012Q4

REPORT INFORMATION
  Report Type: 
  Country: JP (occurrence: JP)
  Receive Date: 20120829
  Receipt Date: 20121010
  Transmission Date: 20130627
  Serious: Yes (Hospitalization, Disabling, Other)
  Sender: FDA-Public Use
  Company Number: PHHY2012JP073987

PATIENT
  Age: 70 Year
  Sex: Female

DRUGS (1)
  1. FEMARA [Suspect]
     Indication: BREAST CANCER
     Dosage: 2.5 mg, daily
     Route: 048
     Dates: start: 201207, end: 20120815

REACTIONS (5)
  - Embolism [Recovering/Resolving]
  - Dyslalia [Unknown]
  - Hemiparesis [Unknown]
  - Hemiplegia [Unknown]
  - Dysphagia [Unknown]
